FAERS Safety Report 6715171 (Version 2)
Quarter: 2014Q3

REPORT INFORMATION
  Report Type: Spontaneous
  Country: US (occurrence: US)
  Receive Date: 20080731
  Receipt Date: 20140728
  Transmission Date: 20150326
  Serious: Yes (Other)
  Sender: FDA-Public Use
  Company Number: US-RANBAXY-2007US-16571

PATIENT

DRUGS (5)
  1. CLARAVIS [Suspect]
     Active Substance: ISOTRETINOIN
     Dosage: UNK
     Dates: start: 20040709, end: 20040808
  2. ALEVE [Concomitant]
     Active Substance: NAPROXEN SODIUM
     Dosage: UNK
  3. IBUPROFEN. [Concomitant]
     Active Substance: IBUPROFEN
     Dosage: UNK
  4. CLARAVIS [Suspect]
     Active Substance: ISOTRETINOIN
     Indication: ACNE
     Dosage: UNK
     Dates: start: 20040413, end: 20040611
  5. ISOTRETINOIN [Suspect]
     Active Substance: ISOTRETINOIN
     Indication: ACNE
     Dosage: UNK
     Dates: start: 20040609, end: 20040709

REACTIONS (32)
  - Vomiting [Unknown]
  - Rectal haemorrhage [Unknown]
  - Flat affect [Unknown]
  - Decreased interest [Unknown]
  - Panic attack [Unknown]
  - Inflammatory bowel disease [Unknown]
  - Oedema [Unknown]
  - Back pain [Unknown]
  - Anaemia [Unknown]
  - Suicide attempt [Unknown]
  - Nausea [Unknown]
  - Gastrointestinal disorder [Unknown]
  - Swelling [Unknown]
  - Irritability [Unknown]
  - Arthralgia [Unknown]
  - Insomnia [Unknown]
  - Decreased appetite [Unknown]
  - Sleep disorder [Unknown]
  - Crohn^s disease [Unknown]
  - Increased appetite [Unknown]
  - Restlessness [Unknown]
  - Distractibility [Unknown]
  - Fear [Unknown]
  - Weight decreased [Unknown]
  - Suicidal ideation [Unknown]
  - Haematochezia [Unknown]
  - Anxiety [Unknown]
  - Depressed mood [Unknown]
  - Feelings of worthlessness [Unknown]
  - Abdominal pain [Unknown]
  - Disturbance in attention [Unknown]
  - Fatigue [Unknown]

NARRATIVE: CASE EVENT DATE: 2005
